FAERS Safety Report 10828400 (Version 2)
Quarter: 2015Q2

REPORT INFORMATION
  Report Type: Report from Study
  Country: PR (occurrence: PR)
  Receive Date: 20150219
  Receipt Date: 20150520
  Transmission Date: 20150821
  Serious: Yes (Hospitalization, Other)
  Sender: FDA-Public Use
  Company Number: PR-ABBVIE-14P-131-1254187-00

PATIENT
  Age: 34 Year
  Sex: Female
  Weight: 79 kg

DRUGS (8)
  1. METHOTREXATE [Concomitant]
     Active Substance: METHOTREXATE
     Indication: ARTHRITIS
     Route: 048
  2. HUMULIN R [Concomitant]
     Active Substance: INSULIN HUMAN
     Indication: DIABETES MELLITUS
     Dosage: 18 UNIT AM AND 12 UNIT PM
  3. FOLIC ACID. [Concomitant]
     Active Substance: FOLIC ACID
     Indication: ARTHRITIS
     Route: 048
  4. LISINOPRIL. [Concomitant]
     Active Substance: LISINOPRIL
     Indication: RENAL DISORDER
     Route: 048
  5. RELAFEN [Concomitant]
     Active Substance: NABUMETONE
     Indication: PAIN
     Route: 048
  6. HUMULIN N [Concomitant]
     Active Substance: INSULIN HUMAN
     Indication: DIABETES MELLITUS
     Dosage: 36 UNIT AM AND 20 UNIT PM
     Route: 058
  7. INSULIN [Concomitant]
     Active Substance: INSULIN NOS
     Indication: PRODUCT USED FOR UNKNOWN INDICATION
  8. HUMIRA [Suspect]
     Active Substance: ADALIMUMAB
     Indication: RHEUMATOID ARTHRITIS
     Route: 058
     Dates: start: 2013

REACTIONS (3)
  - Dry eye [Unknown]
  - Retinopathy [Recovered/Resolved]
  - Eye operation [Unknown]

NARRATIVE: CASE EVENT DATE: 201406
